FAERS Safety Report 7304070-2 (Version None)
Quarter: 2011Q1

REPORT INFORMATION
  Report Type: 
  Country: None (occurrence: None)
  Receive Date: 20110221
  Receipt Date: 20110214
  Transmission Date: 20110831
  Serious: Yes (Life-Threatening)
  Sender: FDA-Public Use
  Company Number: PHHY2011US13320

PATIENT

DRUGS (1)
  1. RECLAST [Suspect]
     Dosage: UNK

REACTIONS (1)
  - FEELING ABNORMAL [None]
